FAERS Safety Report 5940071-4 (Version None)
Quarter: 2008Q4

REPORT INFORMATION
  Report Type: 
  Country: None (occurrence: None)
  Receive Date: 20081104
  Receipt Date: 20081027
  Transmission Date: 20090506
  Serious: Yes (Other)
  Sender: FDA-Public Use
  Company Number: PHHY2008VE26316

PATIENT
  Age: 38 Year
  Sex: Male

DRUGS (5)
  1. SEBIVO [Suspect]
     Indication: HEPATITIS B
     Dosage: 600 MG, UNK
     Dates: start: 20080818, end: 20080922
  2. PROPRANOLOL [Concomitant]
     Dosage: UNK
     Dates: start: 20080801
  3. CIPROFLOXACIN [Concomitant]
     Dosage: UNK
     Dates: start: 20080801
  4. LACTULOSE [Concomitant]
     Dosage: UNK
     Dates: start: 20080801
  5. MULTI-VITAMINS [Concomitant]
     Dosage: 1 DF, QD
     Route: 048
     Dates: start: 20080801

REACTIONS (3)
  - BLOOD CREATINE PHOSPHOKINASE INCREASED [None]
  - MYALGIA [None]
  - RHABDOMYOLYSIS [None]
